FAERS Safety Report 9498818 (Version 1)
Quarter: 2013Q3

REPORT INFORMATION
  Report Type: Spontaneous
  Country: GB (occurrence: GB)
  Receive Date: 20130904
  Receipt Date: 20130904
  Transmission Date: 20140515
  Serious: Yes (Other)
  Sender: FDA-Public Use
  Company Number: GB-TEVA-430085ISR

PATIENT
  Sex: Male

DRUGS (2)
  1. BISOPROLOL [Suspect]
  2. FINASTERIDE NON TEVA BRAND [Concomitant]
     Indication: FATIGUE

REACTIONS (3)
  - Penile haemorrhage [Unknown]
  - Penile pain [Unknown]
  - Dysuria [Unknown]
